FAERS Safety Report 8203398 (Version 6)
Quarter: 2013Q3

REPORT INFORMATION
  Report Type: Report from Study
  Country: IL (occurrence: IL)
  Receive Date: 20111027
  Receipt Date: 20130725
  Transmission Date: 20140515
  Serious: Yes (Hospitalization)
  Sender: FDA-Public Use
  Company Number: US-PFIZER INC-K201100711

PATIENT
  Age: 70 Year
  Sex: Male

DRUGS (15)
  1. RAMIPRIL [Suspect]
     Dosage: 1 MG, UNK
     Route: 048
     Dates: end: 20110531
  2. METFORMIN HCL [Suspect]
     Indication: TYPE 2 DIABETES MELLITUS
     Dosage: 2550 MG, UNK
     Route: 065
     Dates: end: 20110303
  3. METFORMIN HCL [Suspect]
     Dosage: 850 MG, UNK
     Route: 065
     Dates: start: 20110303, end: 20110531
  4. SAXAGLIPTIN HYDROCHLORIDE [Suspect]
     Indication: TYPE 2 DIABETES MELLITUS
     Dosage: UNK
     Route: 065
     Dates: start: 20110303
  5. SAXAGLIPTIN HYDROCHLORIDE [Suspect]
     Dosage: UNK
     Route: 065
     Dates: end: 20130206
  6. HUMALOG MIX 25 [Suspect]
     Indication: TYPE 2 DIABETES MELLITUS
     Dosage: 34 IU, UNK
     Route: 065
     Dates: end: 20110318
  7. HUMALOG MIX 25 [Suspect]
     Dosage: 26 IU, UNK
     Dates: start: 20110319, end: 20110612
  8. HUMALOG [Suspect]
     Indication: TYPE 2 DIABETES MELLITUS
     Dosage: 25 IU, UNK
     Route: 065
     Dates: start: 20110303, end: 20110602
  9. HUMALOG [Suspect]
     Dosage: 16 IU, UNK
     Route: 065
     Dates: start: 20110308, end: 20110601
  10. HUMALOG [Suspect]
     Dosage: 26 IU, UNK
     Route: 065
     Dates: start: 20110322, end: 20110612
  11. HUMALOG [Suspect]
     Dosage: 8 IU, UNK
     Route: 065
     Dates: start: 20110414, end: 20110601
  12. HUMALOG [Suspect]
     Dosage: 16 IU, UNK
     Route: 065
     Dates: start: 20110602, end: 20110816
  13. HUMALOG [Suspect]
     Dosage: 16 IU, UNK
     Route: 065
     Dates: start: 20110602, end: 20110816
  14. AMARYL [Suspect]
     Indication: TYPE 2 DIABETES MELLITUS
     Dosage: 1 MG, UNK
     Route: 065
     Dates: start: 20110612
  15. ASPIRIN [Concomitant]
     Dosage: UNK
     Dates: start: 20110303

REACTIONS (3)
  - Renal failure chronic [Recovered/Resolved]
  - Hypoglycaemia [Recovered/Resolved]
  - Angina pectoris [Recovered/Resolved]
